FAERS Safety Report 5398545-3 (Version None)
Quarter: 2007Q3

REPORT INFORMATION
  Report Type: 
  Country: None (occurrence: None)
  Receive Date: 20070726
  Receipt Date: 20060609
  Transmission Date: 20080115
  Serious: No
  Sender: FDA-Public Use
  Company Number: US-AMGEN-KDL184897

PATIENT
  Sex: Male
  Weight: 63.6 kg

DRUGS (3)
  1. PROCRIT [Suspect]
     Indication: ANAEMIA
  2. GLYBURIDE [Concomitant]
  3. CHROMAGEN FORTE [Concomitant]

REACTIONS (2)
  - CONSTIPATION [None]
  - PRURITUS [None]
